FAERS Safety Report 15338466 (Version 4)
Quarter: 2019Q2

REPORT INFORMATION
  Report Type: Spontaneous
  Country: DE (occurrence: DE)
  Receive Date: 20180831
  Receipt Date: 20190516
  Transmission Date: 20190711
  Serious: Yes (Hospitalization, Other)
  Sender: FDA-Public Use
  Company Number: DE-MYLANLABS-2018M1064608

PATIENT
  Age: 28 Year
  Sex: Female

DRUGS (21)
  1. LORAZEPAM. [Suspect]
     Active Substance: LORAZEPAM
     Indication: PETIT MAL EPILEPSY
     Dosage: 1 MG, UNK
     Route: 042
  2. LORAZEPAM. [Suspect]
     Active Substance: LORAZEPAM
     Dosage: UNK
  3. BRIVARACETAM [Suspect]
     Active Substance: BRIVARACETAM
     Indication: PETIT MAL EPILEPSY
     Dosage: 50 MG, QD
     Route: 065
  4. LAMOTRIGINE. [Suspect]
     Active Substance: LAMOTRIGINE
     Indication: SEIZURE
     Dosage: 50 MG, BID
  5. LAMOTRIGINE. [Suspect]
     Active Substance: LAMOTRIGINE
     Dosage: 450 MG, UNK
  6. LEVETIRACETAM. [Suspect]
     Active Substance: LEVETIRACETAM
     Dosage: 1000 MG, QD
     Route: 042
  7. LORAZEPAM. [Suspect]
     Active Substance: LORAZEPAM
     Indication: SEIZURE
     Dosage: 4 MG, UNK
     Route: 042
  8. VALPROIC ACID. [Suspect]
     Active Substance: VALPROIC ACID
     Indication: PETIT MAL EPILEPSY
     Dosage: 1600 MG, UNK
     Route: 042
  9. LEVETIRACETAM. [Suspect]
     Active Substance: LEVETIRACETAM
     Indication: SEIZURE
     Dosage: 300 MG, UNK
     Route: 042
  10. MIDAZOLAM [Suspect]
     Active Substance: MIDAZOLAM HYDROCHLORIDE
     Indication: SEIZURE
     Dosage: 5 MILLIGRAM
  11. LAMOTRIGINE. [Suspect]
     Active Substance: LAMOTRIGINE
     Indication: PETIT MAL EPILEPSY
     Dosage: 400 MG, QD
  12. LEVETIRACETAM. [Suspect]
     Active Substance: LEVETIRACETAM
     Dosage: 1000 MG, QD
     Route: 042
  13. LACOSAMIDE. [Suspect]
     Active Substance: LACOSAMIDE
     Indication: SEIZURE
     Dosage: 200 MG, UNK
     Route: 042
  14. BRIVARACETAM [Suspect]
     Active Substance: BRIVARACETAM
     Dosage: 300 MG, UNK
  15. LAMOTRIGINE. [Suspect]
     Active Substance: LAMOTRIGINE
     Dosage: 50 MILLIGRAM, QD
  16. LORAZEPAM. [Suspect]
     Active Substance: LORAZEPAM
     Dosage: 1 MG, UNK
  17. SODIUM VALPROATE [Suspect]
     Active Substance: VALPROATE SODIUM
     Indication: PETIT MAL EPILEPSY
     Dosage: 1600 MILLIGRAM
     Route: 042
  18. LEVETIRACETAM. [Suspect]
     Active Substance: LEVETIRACETAM
     Indication: PETIT MAL EPILEPSY
     Dosage: 3000 MG, UNK
     Route: 042
  19. LACOSAMIDE. [Suspect]
     Active Substance: LACOSAMIDE
     Indication: PETIT MAL EPILEPSY
     Dosage: 200 MG 1ST DOSE AND 200 MG 40 MIN AFTER THE 1ST
     Route: 042
  20. BRIVARACETAM [Suspect]
     Active Substance: BRIVARACETAM
     Indication: SEIZURE
     Dosage: 200 MG, UNK
     Route: 065
  21. LAMOTRIGINE. [Suspect]
     Active Substance: LAMOTRIGINE
     Dosage: THEN STOPPED AFTER 24 HOURS

REACTIONS (9)
  - Hypertension [Unknown]
  - Multiple-drug resistance [Unknown]
  - Petit mal epilepsy [Recovered/Resolved]
  - Treatment failure [Unknown]
  - Overdose [Unknown]
  - Anxiety disorder [Unknown]
  - Off label use [Unknown]
  - Depression [Unknown]
  - Seizure [Unknown]
